FAERS Safety Report 14447861 (Version 1)
Quarter: 2018Q1

REPORT INFORMATION
  Report Type: Spontaneous
  Country: US (occurrence: US)
  Receive Date: 20180126
  Receipt Date: 20180126
  Transmission Date: 20180509
  Serious: Yes (Death, Life-Threatening, Hospitalization, Other)
  Sender: FDA-Public Use
  Company Number: US-SA-2018SA019456

PATIENT
  Age: 67 Year
  Sex: Male

DRUGS (2)
  1. DOCETAXEL. [Suspect]
     Active Substance: DOCETAXEL
     Indication: PROSTATE CANCER METASTATIC
     Dosage: DOCETAXEL AT A DOSE OF 75 MILLIGRAMS PER BODY SURFACE AREA IN METERS SQUARED
     Route: 065
  2. PREDNISONE. [Concomitant]
     Active Substance: PREDNISONE
     Indication: PROSTATE CANCER METASTATIC

REACTIONS (4)
  - Cardiac arrest [Fatal]
  - Systemic inflammatory response syndrome [Fatal]
  - Tumour lysis syndrome [Fatal]
  - Renal failure [Fatal]
